FAERS Safety Report 9752825 (Version 1)
Quarter: 2013Q4

REPORT INFORMATION
  Report Type: Spontaneous
  Country: US (occurrence: None)
  Receive Date: 20131212
  Receipt Date: 20131212
  Transmission Date: 20140711
  Serious: Yes (Other)
  Sender: FDA-Public Use
  Company Number: None

PATIENT
  Age: 53 Year
  Sex: Female
  Weight: 43.9 kg

DRUGS (1)
  1. PACLITAXEL [Suspect]
     Indication: LUNG NEOPLASM MALIGNANT
     Dosage: 50 MG/M2 (75 MG) ?60 MIN INFUSION?INTRAVENOUS
     Route: 042
     Dates: start: 20131210, end: 20131210

REACTIONS (3)
  - Dyspnoea [None]
  - Feeling hot [None]
  - Back pain [None]
